FAERS Safety Report 6219213-1 (Version None)
Quarter: 2009Q2

REPORT INFORMATION
  Report Type: 
  Country: None (occurrence: None)
  Receive Date: 20090609
  Receipt Date: 20090528
  Transmission Date: 20091009
  Serious: Yes (Hospitalization)
  Sender: FDA-Public Use
  Company Number: FR-PFIZER INC-2009222736

PATIENT
  Age: 88 Year

DRUGS (1)
  1. HYDROXYZINE HCL [Suspect]
     Dosage: 0.5 DF, SINGLE
     Route: 048
     Dates: start: 20090408, end: 20090408

REACTIONS (3)
  - HYPERTHERMIA [None]
  - PRURITUS [None]
  - RASH GENERALISED [None]
